FAERS Safety Report 24141198 (Version 1)
Quarter: 2024Q3

REPORT INFORMATION
  Report Type: Spontaneous
  Country: JP (occurrence: JP)
  Receive Date: 20240726
  Receipt Date: 20240726
  Transmission Date: 20241016
  Serious: Yes (Other)
  Sender: PFIZER
  Company Number: JP-PFIZER INC-PV202400095643

PATIENT
  Age: 6 Decade
  Sex: Male

DRUGS (1)
  1. FLUCONAZOLE [Suspect]
     Active Substance: FLUCONAZOLE
     Indication: Mycotic endophthalmitis
     Dosage: 400 MG, 1X/DAY
     Route: 048

REACTIONS (2)
  - Nephropathy toxic [Recovering/Resolving]
  - Off label use [Unknown]
